FAERS Safety Report 10947047 (Version 1)
Quarter: 2015Q1

REPORT INFORMATION
  Report Type: Spontaneous
  Country: US (occurrence: US)
  Receive Date: 20150323
  Receipt Date: 20150323
  Transmission Date: 20150721
  Serious: Yes (Other)
  Sender: FDA-Public Use
  Company Number: US-MYLANLABS-2014M1014934

PATIENT
  Sex: Female

DRUGS (1)
  1. IFOSFAMIDE INJECTION [Suspect]
     Active Substance: IFOSFAMIDE
     Dosage: UNK , UNK
     Dates: start: 20141124, end: 20141124

REACTIONS (1)
  - Neurotoxicity [Recovered/Resolved]

NARRATIVE: CASE EVENT DATE: 20141124
